FAERS Safety Report 17403599 (Version 1)
Quarter: 2020Q1

REPORT INFORMATION
  Report Type: Spontaneous
  Country: US (occurrence: US)
  Receive Date: 20200211
  Receipt Date: 20200211
  Transmission Date: 20200409
  Serious: No
  Sender: FDA-Public Use
  Company Number: US-PERRIGO-19US008567

PATIENT
  Sex: Female
  Weight: 63.49 kg

DRUGS (12)
  1. CETIRIZINE HYDROCHLORIDE. [Suspect]
     Active Substance: CETIRIZINE HYDROCHLORIDE
     Indication: SWELLING
     Dosage: 20 MG EVERY MORNING, 10 MG NIGHTLY
     Route: 048
     Dates: start: 201811, end: 20190714
  2. STEROIDS [Concomitant]
     Active Substance: UNSPECIFIED INGREDIENT
     Indication: SWELLING
  3. CETIRIZINE HYDROCHLORIDE. [Suspect]
     Active Substance: CETIRIZINE HYDROCHLORIDE
     Indication: PRURITUS
     Dosage: 20 MG, EVERY MORNING
     Route: 048
     Dates: start: 2017, end: 201811
  4. PRILOSEC [Concomitant]
     Active Substance: OMEPRAZOLE MAGNESIUM
     Indication: GASTROOESOPHAGEAL REFLUX DISEASE
     Dosage: 40 MG, BID
     Route: 048
     Dates: start: 2018, end: 20190715
  5. STEROIDS [Concomitant]
     Active Substance: UNSPECIFIED INGREDIENT
     Indication: PRURITUS
  6. CETIRIZINE HYDROCHLORIDE. [Suspect]
     Active Substance: CETIRIZINE HYDROCHLORIDE
     Indication: URTICARIA
     Dosage: 10 MG, QD
     Route: 048
     Dates: start: 2013, end: 2017
  7. CETIRIZINE HYDROCHLORIDE. [Suspect]
     Active Substance: CETIRIZINE HYDROCHLORIDE
     Indication: HYPERSENSITIVITY
     Dosage: 20 MG, EVERY MORNING
     Route: 048
     Dates: start: 20190715
  8. ASPIRIN                            /00002701/ [Concomitant]
     Active Substance: ASPIRIN
     Indication: PROPHYLAXIS
     Dosage: 81 MG
     Route: 065
     Dates: end: 20190716
  9. PROBIOTICS NOS [Concomitant]
     Active Substance: PROBIOTICS NOS
     Indication: ROUTINE HEALTH MAINTENANCE
     Dosage: UNK
     Route: 065
     Dates: start: 201907, end: 201907
  10. CETIRIZINE HYDROCHLORIDE. [Suspect]
     Active Substance: CETIRIZINE HYDROCHLORIDE
     Indication: GASTROOESOPHAGEAL REFLUX DISEASE
  11. SUCRALFATE. [Concomitant]
     Active Substance: SUCRALFATE
     Indication: DYSPEPSIA
     Dosage: 1 MG
     Route: 065
     Dates: start: 2019, end: 20190715
  12. STEROIDS [Concomitant]
     Active Substance: UNSPECIFIED INGREDIENT
     Indication: URTICARIA
     Dosage: UNK
     Route: 030

REACTIONS (3)
  - Overdose [Recovered/Resolved]
  - Drug effective for unapproved indication [Unknown]
  - Off label use [Recovered/Resolved]

NARRATIVE: CASE EVENT DATE: 2013
